FAERS Safety Report 6203814-0 (Version None)
Quarter: 2009Q2

REPORT INFORMATION
  Report Type: 
  Country: None (occurrence: None)
  Receive Date: 20090522
  Receipt Date: 20090511
  Transmission Date: 20091009
  Serious: Yes (Hospitalization)
  Sender: FDA-Public Use
  Company Number: 2009S1008252

PATIENT
  Age: 42 Year
  Sex: Female

DRUGS (5)
  1. VERAPAMIL [Suspect]
     Indication: MIGRAINE
     Dosage: 120 MG;NULL_1_DAY;
  2. FIORICET [Concomitant]
  3. TOPIRAMATE [Concomitant]
  4. SUMATRIPTAN SUCCINATE [Concomitant]
  5. AMITRIPTLINE HYDROCHLORIDE TAB [Concomitant]

REACTIONS (10)
  - ATRIOVENTRICULAR BLOCK COMPLETE [None]
  - DEPRESSED LEVEL OF CONSCIOUSNESS [None]
  - DRUG INTERACTION [None]
  - FOOD INTERACTION [None]
  - HEADACHE [None]
  - HYPERGLYCAEMIA [None]
  - INCORRECT DOSE ADMINISTERED [None]
  - METABOLIC ACIDOSIS [None]
  - PALPITATIONS [None]
  - RESPIRATORY FAILURE [None]
